FAERS Safety Report 7350356-5 (Version None)
Quarter: 2011Q1

REPORT INFORMATION
  Report Type: 
  Country: None (occurrence: None)
  Receive Date: 20110222
  Receipt Date: 20101102
  Transmission Date: 20110831
  Serious: No
  Sender: FDA-Public Use
  Company Number: 018852

PATIENT
  Sex: Male
  Weight: 59 kg

DRUGS (2)
  1. LACOSAMIDE [Suspect]
     Indication: CONVULSION
     Dosage: (50 MG BID WITH FOOD ORAL), (75 MG QD ORAL)
     Route: 048
     Dates: start: 20100401
  2. LACOSAMIDE [Suspect]
     Indication: CONVULSION
     Dosage: (50 MG BID WITH FOOD ORAL), (75 MG QD ORAL)
     Route: 048
     Dates: start: 20100308

REACTIONS (1)
  - ACNE [None]
